FAERS Safety Report 23034682 (Version 3)
Quarter: 2023Q4

REPORT INFORMATION
  Report Type: Report from Study
  Country: US (occurrence: US)
  Receive Date: 20231005
  Receipt Date: 20231214
  Transmission Date: 20240109
  Serious: Yes (Hospitalization, Other)
  Sender: FDA-Public Use
  Company Number: US-ABBVIE-5434160

PATIENT
  Sex: Female

DRUGS (4)
  1. SKYRIZI [Suspect]
     Active Substance: RISANKIZUMAB-RZAA
     Indication: Psoriasis
     Dosage: 150MG/ML UNDER THE SKIN AT WEEK 0
     Route: 058
     Dates: start: 20230613, end: 20230613
  2. SKYRIZI [Suspect]
     Active Substance: RISANKIZUMAB-RZAA
     Dosage: 150MG/ML UNDER THE SKIN AT WEEK 4
     Route: 058
     Dates: start: 20230711, end: 20230711
  3. SKYRIZI [Suspect]
     Active Substance: RISANKIZUMAB-RZAA
     Dosage: 150MG/ML UNDER THE SKIN AT WEEK 12
     Route: 058
     Dates: start: 202309
  4. SKYRIZI [Suspect]
     Active Substance: RISANKIZUMAB-RZAA
     Dosage: LOADING DOSE
     Route: 058
     Dates: start: 20230228, end: 20230308

REACTIONS (3)
  - Large intestinal haemorrhage [Unknown]
  - Fatigue [Not Recovered/Not Resolved]
  - Dermatitis psoriasiform [Unknown]

NARRATIVE: CASE EVENT DATE: 20230101
